FAERS Safety Report 7370050-4 (Version None)
Quarter: 2011Q1

REPORT INFORMATION
  Report Type: 
  Country: None (occurrence: None)
  Receive Date: 20110323
  Receipt Date: 20110211
  Transmission Date: 20110831
  Serious: No
  Sender: FDA-Public Use
  Company Number: US-BAYER-2011-015114

PATIENT
  Sex: Female
  Weight: 52 kg

DRUGS (2)
  1. BUTALBITAL [Concomitant]
     Dosage: UNK
  2. ALEVE (CAPLET) [Suspect]
     Dosage: BOTTLE COUNT 24S
     Dates: start: 20110211

REACTIONS (1)
  - NO ADVERSE EVENT [None]
